FAERS Safety Report 9173552 (Version 2)
Quarter: 2013Q2

REPORT INFORMATION
  Report Type: Spontaneous
  Country: US (occurrence: None)
  Receive Date: 20130314
  Receipt Date: 20130403
  Transmission Date: 20140414
  Serious: Yes (Hospitalization, Other)
  Sender: FDA-Public Use
  Company Number: JPI-P-030181

PATIENT
  Age: 45 Year
  Sex: Female
  Weight: 65.77 kg

DRUGS (10)
  1. XYREM [Suspect]
     Indication: INSOMNIA
     Route: 048
     Dates: start: 20130213, end: 20130213
  2. XYREM [Suspect]
     Indication: SOMNOLENCE
     Route: 048
     Dates: start: 20130213, end: 20130213
  3. ARMOUR THYROID [Concomitant]
  4. CLONAZEPAM [Concomitant]
  5. XANAX [Concomitant]
  6. TRAMADOL [Concomitant]
  7. TRAZODONE [Concomitant]
  8. ZANAFLEX (TIZANIDINE) [Concomitant]
  9. DETOXIFICATION REGIMEN [Concomitant]
  10. HYDROCORTISONE [Concomitant]

REACTIONS (15)
  - Nightmare [None]
  - Insomnia [None]
  - Nausea [None]
  - Diarrhoea [None]
  - Abdominal pain [None]
  - Norovirus test positive [None]
  - Sinusitis [None]
  - Ear infection [None]
  - Nasopharyngitis [None]
  - Anxiety [None]
  - Withdrawal syndrome [None]
  - Temporomandibular joint syndrome [None]
  - Tremor [None]
  - Mood altered [None]
  - Depression [None]
